FAERS Safety Report 21479309 (Version 1)
Quarter: 2022Q4

REPORT INFORMATION
  Report Type: Spontaneous
  Country: BR (occurrence: BR)
  Receive Date: 20221019
  Receipt Date: 20221019
  Transmission Date: 20230113
  Serious: No
  Sender: FDA-Public Use
  Company Number: BR-LUPIN PHARMACEUTICALS INC.-2022-12024

PATIENT
  Age: 51 Year
  Sex: Male

DRUGS (6)
  1. SULFAMETHOXAZOLE AND TRIMETHOPRIM [Suspect]
     Active Substance: SULFAMETHOXAZOLE\TRIMETHOPRIM
     Indication: Infection prophylaxis
     Dosage: SULFAMETHOXAZOLE 400MG AND TRIMETHOPRIM 80MG
     Route: 065
  2. RITUXIMAB [Suspect]
     Active Substance: RITUXIMAB
     Indication: B-cell lymphoma
     Dosage: 700 MG, EIGHT CYCLES (PART OF R-CVP CHEMOTHERAPY)
     Route: 065
  3. VINCRISTINE [Suspect]
     Active Substance: VINCRISTINE
     Indication: B-cell lymphoma
     Dosage: 2 MG, EIGHT CYCLES (PART OF R-CVP CHEMOTHERAPY)
     Route: 065
  4. CYCLOPHOSPHAMIDE [Suspect]
     Active Substance: CYCLOPHOSPHAMIDE
     Indication: B-cell lymphoma
     Dosage: 1414 MG, EIGHT CYCLES
     Route: 065
  5. PREDNISONE [Suspect]
     Active Substance: PREDNISONE
     Indication: B-cell lymphoma
     Dosage: 60 MG, EIGHT CYCLES (PART OF R-CVP (CHEMOTHERAPY)
     Route: 065
  6. ACYCLOVIR [Suspect]
     Active Substance: ACYCLOVIR
     Indication: Infection prophylaxis
     Dosage: 200 MG, AFTER THE END OF CHEMOTHERAPY IT WAS MAINTAINED FOR MORE 7 MONTHS
     Route: 065

REACTIONS (1)
  - Oral lichenoid reaction [Recovering/Resolving]
